FAERS Safety Report 7291600-2 (Version None)
Quarter: 2011Q1

REPORT INFORMATION
  Report Type: 
  Country: None (occurrence: None)
  Receive Date: 20110214
  Receipt Date: 20110208
  Transmission Date: 20110831
  Serious: Yes (Other)
  Sender: FDA-Public Use
  Company Number: US-B.I. PHARMACEUTICALS,INC./RIDGEFIELD-2011-BP-02458BP

PATIENT
  Age: 89 Year
  Sex: Male

DRUGS (4)
  1. PLAVIX [Concomitant]
     Indication: CARDIAC DISORDER
  2. ASPIRIN [Concomitant]
     Indication: CARDIAC DISORDER
  3. MICARDIS HCT [Suspect]
     Indication: HYPERTENSION
     Route: 048
     Dates: start: 20110125
  4. COREG [Concomitant]
     Indication: HYPERTENSION

REACTIONS (1)
  - HYPERTENSION [None]
